FAERS Safety Report 12465609 (Version 1)
Quarter: 2016Q2

REPORT INFORMATION
  Report Type: Spontaneous
  Country: SE (occurrence: SE)
  Receive Date: 20160614
  Receipt Date: 20160614
  Transmission Date: 20160815
  Serious: Yes (Other)
  Sender: FDA-Public Use
  Company Number: SE-CONCORDIA PHARMACEUTICALS INC.-CO-UX-SE-2016-029

PATIENT
  Age: 57 Year
  Sex: Male

DRUGS (1)
  1. ALFUZOSIN HYDROCHLORIDE. [Suspect]
     Active Substance: ALFUZOSIN HYDROCHLORIDE
     Indication: PRODUCT USED FOR UNKNOWN INDICATION

REACTIONS (1)
  - Tinnitus [Not Recovered/Not Resolved]
